FAERS Safety Report 6483796-7 (Version None)
Quarter: 2009Q4

REPORT INFORMATION
  Report Type: 
  Country: None (occurrence: None)
  Receive Date: 20091209
  Receipt Date: 20091204
  Transmission Date: 20100525
  Serious: Yes (Hospitalization)
  Sender: FDA-Public Use
  Company Number: FR-WYE-G05056209

PATIENT
  Sex: Female

DRUGS (3)
  1. RHINADVIL [Suspect]
     Indication: NASOPHARYNGITIS
     Route: 048
     Dates: start: 20090916, end: 20090922
  2. EFFERALGAN CODEINE [Suspect]
     Indication: PYREXIA
     Dosage: UNKNOWN
     Route: 048
     Dates: start: 20090916, end: 20090922
  3. ATURGYL [Suspect]
     Indication: RHINORRHOEA
     Dosage: UNKNOWN
     Route: 045
     Dates: start: 20090916, end: 20090922

REACTIONS (9)
  - ASTHENIA [None]
  - BURNING SENSATION [None]
  - DRUG RASH WITH EOSINOPHILIA AND SYSTEMIC SYMPTOMS [None]
  - FACE OEDEMA [None]
  - INFLAMMATION [None]
  - LEUKOCYTOSIS [None]
  - LYMPHOPENIA [None]
  - TOXIC SKIN ERUPTION [None]
  - URTICARIA [None]
